FAERS Safety Report 11193127 (Version 1)
Quarter: 2015Q2

REPORT INFORMATION
  Report Type: Spontaneous
  Country: US (occurrence: US)
  Receive Date: 20150616
  Receipt Date: 20150616
  Transmission Date: 20150821
  Serious: Yes (Other)
  Sender: FDA-Public Use
  Company Number: US-JNJFOC-20150609432

PATIENT
  Age: 23 Year
  Sex: Female

DRUGS (1)
  1. INFLIXIMAB, RECOMBINANT [Suspect]
     Active Substance: INFLIXIMAB
     Indication: CROHN^S DISEASE
     Dosage: EVERY 0,2,4 AND 6 WEEKS FOLLOWED BY MAINTAINANCE INFUSIONS EVERY 8 WEEKS
     Route: 042

REACTIONS (3)
  - Follicular mucinosis [Recovered/Resolved]
  - Exfoliative rash [Recovered/Resolved]
  - Pustular psoriasis [Recovered/Resolved]
